FAERS Safety Report 11516906 (Version 1)
Quarter: 2015Q3

REPORT INFORMATION
  Report Type: Spontaneous
  Country: US (occurrence: US)
  Receive Date: 20150917
  Receipt Date: 20150917
  Transmission Date: 20151125
  Serious: No
  Sender: FDA-Public Use
  Company Number: US-APOTEX-2014AP005345

PATIENT
  Sex: Female

DRUGS (7)
  1. PAXIL [Suspect]
     Active Substance: PAROXETINE HYDROCHLORIDE
     Dosage: 6.7 - 6.3 MG, UNKNOWN
     Route: 065
     Dates: start: 2013, end: 20140224
  2. PAXIL [Suspect]
     Active Substance: PAROXETINE HYDROCHLORIDE
     Dosage: 7.5 - 6.8 MG, UNKNOWN
     Route: 065
     Dates: start: 2012, end: 2013
  3. PAXIL [Suspect]
     Active Substance: PAROXETINE HYDROCHLORIDE
     Dosage: 10.5 - 7.6 MG, UNKNOWN
     Route: 065
     Dates: start: 2011, end: 2012
  4. PAXIL [Suspect]
     Active Substance: PAROXETINE HYDROCHLORIDE
     Indication: PRODUCT USED FOR UNKNOWN INDICATION
     Dosage: UNK
     Route: 065
     Dates: start: 1998, end: 2009
  5. PAXIL [Suspect]
     Active Substance: PAROXETINE HYDROCHLORIDE
     Dosage: 14 - 10.5 MG, UNKNOWN
     Route: 065
     Dates: start: 2010, end: 2011
  6. PAXIL [Suspect]
     Active Substance: PAROXETINE HYDROCHLORIDE
     Dosage: 20 - 14MG, UNKNOWN
     Route: 065
     Dates: start: 2009, end: 2010
  7. PAXIL [Suspect]
     Active Substance: PAROXETINE HYDROCHLORIDE
     Dosage: 6.2 MG, UNKNOWN
     Route: 065
     Dates: start: 20140224

REACTIONS (6)
  - Alopecia [Unknown]
  - Acne [Unknown]
  - Drug withdrawal syndrome [Unknown]
  - Premenstrual syndrome [Unknown]
  - Menstruation irregular [Unknown]
  - Hormone level abnormal [Unknown]
